FAERS Safety Report 5443437-4 (Version None)
Quarter: 2007Q3

REPORT INFORMATION
  Report Type: 
  Country: None (occurrence: None)
  Receive Date: 20070905
  Receipt Date: 20070828
  Transmission Date: 20080115
  Serious: Yes (Death, Life-Threatening)
  Sender: FDA-Public Use
  Company Number: US-BAXTER-2007BH007380

PATIENT
  Age: 40 Year
  Sex: Female
  Weight: 70 kg

DRUGS (6)
  1. MORPHINE SULFATE [Suspect]
     Indication: PROCEDURAL PAIN
     Route: 042
     Dates: start: 20070806, end: 20070807
  2. MORPHINE SULFATE [Suspect]
     Route: 042
     Dates: start: 20070807, end: 20070807
  3. FLOMAX [Concomitant]
     Indication: RESIDUAL URINE
     Dosage: DOSE UNIT:UNKNOWN
     Route: 065
     Dates: start: 20070629
  4. ALMOTRIPTAN [Concomitant]
     Indication: DRUG USE FOR UNKNOWN INDICATION
     Dosage: DOSE UNIT:UNKNOWN
     Route: 065
  5. OMEPRAZOLE [Concomitant]
     Indication: DRUG USE FOR UNKNOWN INDICATION
     Dosage: DOSE UNIT:UNKNOWN
     Route: 065
  6. TAMSULOSIN HCL [Concomitant]
     Indication: DRUG USE FOR UNKNOWN INDICATION
     Dosage: DOSE UNIT:UNKNOWN
     Route: 065

REACTIONS (2)
  - CARDIO-RESPIRATORY ARREST [None]
  - DEATH [None]
